FAERS Safety Report 10774983 (Version 1)
Quarter: 2015Q1

REPORT INFORMATION
  Report Type: Spontaneous
  Country: US (occurrence: None)
  Receive Date: 20150206
  Receipt Date: 20150206
  Transmission Date: 20150721
  Serious: Yes (Hospitalization)
  Sender: FDA-Public Use
  Company Number: HYP201404-000023

PATIENT
  Age: 23 Month
  Sex: Female
  Weight: 13.43 kg

DRUGS (3)
  1. L-ARGININE [Concomitant]
     Active Substance: ARGININE
  2. ESSENTIAL AMINO ACIDS [Concomitant]
  3. RAVICTI [Suspect]
     Active Substance: GLYCEROL PHENYLBUTYRATE
     Indication: UREA CYCLE ENZYME DEFICIENCY
     Route: 048
     Dates: start: 20140408

REACTIONS (2)
  - Vomiting [None]
  - Hyperammonaemic crisis [None]

NARRATIVE: CASE EVENT DATE: 20140410
